FAERS Safety Report 12800602 (Version 2)
Quarter: 2016Q4

REPORT INFORMATION
  Report Type: Spontaneous
  Country: CN (occurrence: CN)
  Receive Date: 20160930
  Receipt Date: 20161020
  Transmission Date: 20170207
  Serious: Yes (Other)
  Sender: FDA-Public Use
  Company Number: CN-ASTRAZENECA-2015SF11096

PATIENT
  Age: 409 Month
  Sex: Female

DRUGS (9)
  1. SYMBICORT [Suspect]
     Active Substance: BUDESONIDE\FORMOTEROL FUMARATE DIHYDRATE
     Indication: ASTHMA
     Dosage: 160/4.5 UG, ONE INHALATION TWICE DAILY
     Route: 055
     Dates: start: 20140704
  2. SYMBICORT [Suspect]
     Active Substance: BUDESONIDE\FORMOTEROL FUMARATE DIHYDRATE
     Indication: BRONCHITIS
     Dosage: 160/4.5 UG, ONE INHALATION TWICE DAILY
     Route: 055
     Dates: start: 20140704
  3. TRADITIONAL CHINESE MEDICINE [Concomitant]
     Active Substance: HERBALS
     Dates: start: 201509, end: 201510
  4. SYMBICORT [Suspect]
     Active Substance: BUDESONIDE\FORMOTEROL FUMARATE DIHYDRATE
     Indication: ASTHMA
     Dosage: 160/4.5 UG, ONE INHALATION DAILY
     Route: 055
     Dates: start: 20150423, end: 201510
  5. SYMBICORT [Suspect]
     Active Substance: BUDESONIDE\FORMOTEROL FUMARATE DIHYDRATE
     Indication: ASTHMA
     Dosage: 160/4.5 UG, UNKNOWN FREQUENCY, AT NIGHT OCCASIONALLY, SHE DID NOT RECEIVE IT MORE OFTEN THAN ONCE...
     Route: 055
     Dates: start: 201602
  6. SYMBICORT [Suspect]
     Active Substance: BUDESONIDE\FORMOTEROL FUMARATE DIHYDRATE
     Indication: BRONCHITIS
     Dosage: 160/4.5 UG, ONE INHALATION DAILY UNKNOWN
     Route: 055
  7. SYMBICORT [Suspect]
     Active Substance: BUDESONIDE\FORMOTEROL FUMARATE DIHYDRATE
     Indication: BRONCHITIS
     Dosage: 160/4.5 UG, ONE INHALATION DAILY
     Route: 055
     Dates: start: 20150423, end: 201510
  8. SYMBICORT [Suspect]
     Active Substance: BUDESONIDE\FORMOTEROL FUMARATE DIHYDRATE
     Indication: BRONCHITIS
     Dosage: 160/4.5 UG, UNKNOWN FREQUENCY, AT NIGHT OCCASIONALLY, SHE DID NOT RECEIVE IT MORE OFTEN THAN ONCE...
     Route: 055
     Dates: start: 201602
  9. SYMBICORT [Suspect]
     Active Substance: BUDESONIDE\FORMOTEROL FUMARATE DIHYDRATE
     Indication: ASTHMA
     Dosage: 160/4.5 UG, ONE INHALATION DAILY UNKNOWN
     Route: 055

REACTIONS (8)
  - Exposure during pregnancy [Recovered/Resolved]
  - Drug ineffective [Unknown]
  - Asthma [Unknown]
  - Abdominal pain lower [Unknown]
  - Product use issue [Unknown]
  - Intentional product use issue [Unknown]
  - Inflammation [Unknown]
  - Abortion [Unknown]

NARRATIVE: CASE EVENT DATE: 201510
